FAERS Safety Report 16093108 (Version 1)
Quarter: 2019Q1

REPORT INFORMATION
  Report Type: Spontaneous
  Country: US (occurrence: US)
  Receive Date: 20190320
  Receipt Date: 20190320
  Transmission Date: 20190418
  Serious: Yes (Hospitalization, Other)
  Sender: FDA-Public Use
  Company Number: US-CIPLA LTD.-2019US01490

PATIENT

DRUGS (7)
  1. HEPARIN LMW [Suspect]
     Active Substance: UNSPECIFIED INGREDIENT
     Dosage: UNK
     Route: 064
  2. HYDRALAZINE [Suspect]
     Active Substance: HYDRALAZINE HYDROCHLORIDE
     Dosage: UNK
     Route: 064
  3. FUROSEMIDE. [Suspect]
     Active Substance: FUROSEMIDE
     Dosage: UNK
     Route: 064
  4. DIGOXIN. [Suspect]
     Active Substance: DIGOXIN
     Dosage: UNK
     Route: 064
  5. CARVEDILOL. [Suspect]
     Active Substance: CARVEDILOL
     Dosage: UNK
     Route: 064
  6. METHAMPHETAMINE                    /00069101/ [Suspect]
     Active Substance: METHAMPHETAMINE
     Dosage: UNK
     Route: 064
  7. ISOSORBIDE DINITRATE. [Suspect]
     Active Substance: ISOSORBIDE DINITRATE
     Dosage: UNK
     Route: 064

REACTIONS (6)
  - Low birth weight baby [Unknown]
  - Foetal exposure during pregnancy [Unknown]
  - Hyperbilirubinaemia [Unknown]
  - Foetal growth restriction [Unknown]
  - Foetal distress syndrome [Unknown]
  - Premature baby [Unknown]
